FAERS Safety Report 4927562-X (Version None)
Quarter: 2006Q1

REPORT INFORMATION
  Report Type: 
  Country: None (occurrence: None)
  Receive Date: 20060228
  Receipt Date: 20050525
  Transmission Date: 20060701
  Serious: Yes (Hospitalization, Other)
  Sender: FDA-Public Use
  Company Number: US-MERCK-0505USA03084

PATIENT
  Age: 50 Year
  Sex: Female
  Weight: 118 kg

DRUGS (10)
  1. VIOXX [Suspect]
     Indication: BACK PAIN
     Route: 048
     Dates: start: 20010215, end: 20040930
  2. MOTRIN [Concomitant]
     Route: 065
  3. ASPIRIN [Concomitant]
     Route: 065
  4. PREVACID [Concomitant]
     Route: 065
  5. PREMARIN [Concomitant]
     Route: 065
  6. HYDRODIURIL [Concomitant]
     Route: 065
  7. EFFEXOR [Concomitant]
     Route: 065
  8. HYDROCODONE HYDROCHLORIDE [Concomitant]
     Route: 065
  9. ZYRTEC [Concomitant]
     Route: 065
  10. ZESTRIL [Concomitant]
     Route: 065

REACTIONS (16)
  - AORTIC ARTERIOSCLEROSIS [None]
  - CARDIAC ARREST [None]
  - CARDIAC DISORDER [None]
  - CARDIOVASCULAR DISORDER [None]
  - CEREBELLAR INFARCTION [None]
  - CEREBROVASCULAR ACCIDENT [None]
  - DIABETES MELLITUS NON-INSULIN-DEPENDENT [None]
  - DIASTOLIC DYSFUNCTION [None]
  - DILATATION ATRIAL [None]
  - DIZZINESS [None]
  - HEART RATE DECREASED [None]
  - MITRAL VALVE INCOMPETENCE [None]
  - ORGAN FAILURE [None]
  - RENAL FAILURE CHRONIC [None]
  - VENTRICULAR EXTRASYSTOLES [None]
  - VENTRICULAR HYPERTROPHY [None]
